FAERS Safety Report 7840747-8 (Version None)
Quarter: 2011Q4

REPORT INFORMATION
  Report Type: 
  Country: None (occurrence: None)
  Receive Date: 20111021
  Receipt Date: 20111021
  Transmission Date: 20120403
  Serious: Yes (Hospitalization)
  Sender: FDA-Public Use
  Company Number: None

PATIENT
  Sex: Female
  Weight: 80.1 kg

DRUGS (5)
  1. ETOPOSIDE [Suspect]
     Dosage: 372 MG
  2. DOXORUBICIN HCL [Suspect]
     Dosage: 76 MG
  3. NEUPOGEN [Concomitant]
  4. CYCLOPHOSPHAMIDE [Suspect]
     Dosage: 1395 MG
  5. BACTRIM DS [Concomitant]

REACTIONS (14)
  - VAGINAL DISCHARGE [None]
  - HEADACHE [None]
  - ARTHRALGIA [None]
  - HYPOAESTHESIA [None]
  - WHITE BLOOD CELL COUNT DECREASED [None]
  - PARAESTHESIA [None]
  - CHILLS [None]
  - FEBRILE NEUTROPENIA [None]
  - NAUSEA [None]
  - DYSURIA [None]
  - MYALGIA [None]
  - BONE PAIN [None]
  - DIARRHOEA [None]
  - INFECTION [None]
